FAERS Safety Report 4479945-2 (Version None)
Quarter: 2004Q3

REPORT INFORMATION
  Report Type: 
  Country: None (occurrence: None)
  Receive Date: 20040923
  Receipt Date: 20040629
  Transmission Date: 20050211
  Serious: No
  Sender: FDA-Public Use
  Company Number: USA040668869

PATIENT
  Age: 79 Year
  Sex: Female
  Weight: 57 kg

DRUGS (3)
  1. FORTEO [Suspect]
     Indication: SPINAL DEFORMITY
     Dosage: 20 UG DAY
     Dates: start: 20030501, end: 20040616
  2. ACETAMINOPHEN [Concomitant]
  3. NORTRIPTYLINE HCL [Concomitant]

REACTIONS (2)
  - SKIN DISCOLOURATION [None]
  - SPINAL DEFORMITY [None]
